FAERS Safety Report 17583637 (Version 1)
Quarter: 2020Q1

REPORT INFORMATION
  Report Type: Spontaneous
  Country: US (occurrence: US)
  Receive Date: 20200326
  Receipt Date: 20200326
  Transmission Date: 20200409
  Serious: No
  Sender: FDA-Public Use
  Company Number: US-DRREDDYS-USA/USA/20/0120715

PATIENT
  Age: 74 Year
  Sex: Male
  Weight: 74.25 kg

DRUGS (1)
  1. GUAIFENESIN AND PSEUDOEPHEDRINE HYDROCHLORIDE EXTENDED-RELEASE TABLETS [Suspect]
     Active Substance: GUAIFENESIN\PSEUDOEPHEDRINE HYDROCHLORIDE
     Indication: PULMONARY CONGESTION
     Dosage: 1200 MG/120 MG
     Route: 048
     Dates: start: 20200304, end: 20200304

REACTIONS (3)
  - Wrong technique in product usage process [Recovered/Resolved]
  - Oesophagitis [Recovered/Resolved]
  - Product use complaint [Unknown]

NARRATIVE: CASE EVENT DATE: 20200304
